FAERS Safety Report 23366697 (Version 1)
Quarter: 2024Q1

REPORT INFORMATION
  Report Type: Spontaneous
  Country: US (occurrence: None)
  Receive Date: 20240104
  Receipt Date: 20240104
  Transmission Date: 20240410
  Serious: Yes (Hospitalization)
  Sender: FDA-Public Use
  Company Number: None

PATIENT
  Age: 67 Year
  Sex: Female

DRUGS (6)
  1. AUSTEDO [Suspect]
     Active Substance: DEUTETRABENAZINE
     Indication: Chorea
     Dosage: FREQUENCY : TWICE A DAY;?
     Route: 048
     Dates: start: 20210113
  2. LAMICTAL [Concomitant]
     Active Substance: LAMOTRIGINE
  3. LEXAPRO [Concomitant]
     Active Substance: ESCITALOPRAM OXALATE
  4. MAGNESIUM [Concomitant]
     Active Substance: MAGNESIUM
  5. TOPAMAX [Concomitant]
     Active Substance: TOPIRAMATE
  6. XENAZINE [Concomitant]
     Active Substance: TETRABENAZINE

REACTIONS (1)
  - Product dose omission issue [None]

NARRATIVE: CASE EVENT DATE: 20231230
